FAERS Safety Report 7512834-5 (Version None)
Quarter: 2011Q2

REPORT INFORMATION
  Report Type: 
  Country: None (occurrence: None)
  Receive Date: 20110531
  Receipt Date: 20110517
  Transmission Date: 20111010
  Serious: Yes (Other)
  Sender: FDA-Public Use
  Company Number: AT-ELI_LILLY_AND_COMPANY-AT201105006835

PATIENT
  Age: 30 Year
  Sex: Female

DRUGS (16)
  1. ZYPREXA [Suspect]
     Indication: PSYCHOTIC DISORDER
     Dosage: UNK
     Dates: start: 20090101
  2. LITHIUM CARBONATE [Concomitant]
     Dosage: 1125 MG, UNK
     Dates: start: 20110321
  3. OXAZEPAM [Concomitant]
     Dosage: 45 MG, UNK
     Dates: start: 20110313, end: 20110321
  4. NOZINAN [Concomitant]
     Dosage: 75 MG, UNK
     Dates: start: 20110308, end: 20110308
  5. LITHIUM CARBONATE [Concomitant]
     Dosage: 675 MG, UNK
     Dates: start: 20100901, end: 20110316
  6. EUTHYROX [Concomitant]
     Dosage: UNK
     Route: 065
  7. ZYPREXA [Suspect]
     Dosage: 15 MG, DAILY (1/D)
     Dates: start: 20110325, end: 20110325
  8. LITHIUM CARBONATE [Concomitant]
     Dosage: 900 UNK, UNK
     Dates: start: 20110317, end: 20110320
  9. SEROQUEL [Concomitant]
     Dosage: 100 MG, UNK
     Dates: start: 20110324, end: 20110324
  10. ZYPREXA [Suspect]
     Dosage: 10 MG, DAILY (1/D)
     Dates: start: 20110326, end: 20110327
  11. NOZINAN [Concomitant]
     Dosage: 50 MG, QD
     Dates: start: 20110310, end: 20110316
  12. ZYPREXA [Suspect]
     Dosage: UNK
     Dates: start: 20100101
  13. ZYPREXA [Suspect]
     Dosage: 5 MG, DAILY (1/D)
     Dates: start: 20110328, end: 20110328
  14. SEROQUEL [Concomitant]
     Dosage: 300 MG, UNK
     Dates: start: 20110325, end: 20110325
  15. ZYPREXA [Suspect]
     Dosage: 20 MG, DAILY (1/D)
     Dates: start: 20110308, end: 20110324
  16. OXAZEPAM [Concomitant]
     Dosage: 90 MG, UNK
     Dates: start: 20110308, end: 20110312

REACTIONS (3)
  - HYPOTHYROIDISM [None]
  - WEIGHT INCREASED [None]
  - GALACTORRHOEA [None]
